FAERS Safety Report 6711521-0 (Version None)
Quarter: 2010Q2

REPORT INFORMATION
  Report Type: 
  Country: None (occurrence: None)
  Receive Date: 20100505
  Receipt Date: 20100421
  Transmission Date: 20101027
  Serious: Yes (Other)
  Sender: FDA-Public Use
  Company Number: PHEH2008US03145

PATIENT
  Sex: Female

DRUGS (29)
  1. AREDIA [Suspect]
  2. ZOMETA [Suspect]
     Dosage: MONTHLY
     Dates: start: 20050701
  3. METHADONE HYDROCHLORIDE [Concomitant]
  4. ZITHROMAX [Concomitant]
  5. OXYCODONE HCL [Concomitant]
  6. AMOXICILLIN [Concomitant]
  7. NIFEREX (POLYSACCHARIDE-IRON COMPLEX) [Concomitant]
  8. CYTOXAN [Concomitant]
  9. DOXORUBICIN HCL [Concomitant]
  10. METRONIDAZOL ^ALPHARMA^ [Concomitant]
  11. ZANAFLEX [Concomitant]
     Dosage: 2 MG, UNK
     Route: 048
  12. LORAZEPAM [Concomitant]
     Dosage: 2 MG, UNK
     Route: 048
  13. LIDODERM [Concomitant]
     Dosage: 5 %, UNK
     Route: 061
  14. SULFAMETHOXYPYRAZINE/TRIMETHOPRIM [Concomitant]
     Dosage: 800-160 MG, UNK
     Route: 048
  15. LYRICA [Concomitant]
     Dosage: 100 MG, UNK
     Route: 048
  16. EFFEXOR XR [Concomitant]
     Dosage: 75 MG, UNK
     Route: 048
  17. IBUPROFEN [Concomitant]
     Dosage: 800 MG, UNK
     Route: 048
  18. TEMAZEPAM [Concomitant]
     Dosage: 15 MG, UNK
     Route: 048
  19. BACLOFEN [Concomitant]
     Dosage: 20 MG, UNK
     Route: 048
  20. POLYETHYLENE GLYCOL [Concomitant]
     Dosage: UNK
     Route: 048
  21. MILK OF MAGNESIA TAB [Concomitant]
     Dosage: UNK
     Route: 048
  22. DIAZEPAM [Concomitant]
     Dosage: 5 MG, PRN
     Route: 048
  23. METOPROLOL SUCCINATE [Concomitant]
     Dosage: 100 MG, UNK
     Route: 048
  24. GABAPENTIN [Concomitant]
     Dosage: 300 UNK, UNK
     Route: 048
  25. PROCHLORPERAZINE [Concomitant]
     Dosage: 10 MG, UNK
     Route: 048
  26. XELODA [Concomitant]
     Dosage: 500 MG, UNK
     Route: 048
  27. AMBIEN [Concomitant]
     Dosage: 6.25 MG, UNK
     Route: 048
  28. MORPHINE [Concomitant]
     Dosage: 30 MG, UNK
     Route: 048
  29. DILAUDID [Concomitant]

REACTIONS (23)
  - ANXIETY [None]
  - ARTHRITIS [None]
  - BACK PAIN [None]
  - BEDRIDDEN [None]
  - BLADDER CATHETERISATION [None]
  - DEPRESSION [None]
  - EMOTIONAL DISTRESS [None]
  - FAECAL INCONTINENCE [None]
  - INFECTION [None]
  - INJURY [None]
  - INSOMNIA [None]
  - INTERVERTEBRAL DISC DEGENERATION [None]
  - MUSCLE SPASMS [None]
  - NEUROGENIC BLADDER [None]
  - OSTEONECROSIS OF JAW [None]
  - PAIN [None]
  - PARAPLEGIA [None]
  - PHYSICAL DISABILITY [None]
  - SCAR [None]
  - SPINAL OSTEOARTHRITIS [None]
  - TOOTH EXTRACTION [None]
  - TOOTH INFECTION [None]
  - URINARY INCONTINENCE [None]
